FAERS Safety Report 23600242 (Version 1)
Quarter: 2024Q1

REPORT INFORMATION
  Report Type: Spontaneous
  Country: US (occurrence: US)
  Receive Date: 20240306
  Receipt Date: 20240306
  Transmission Date: 20240409
  Serious: Yes (Other)
  Sender: FDA-Public Use
  Company Number: US-ABBVIE-5667111

PATIENT
  Sex: Female

DRUGS (1)
  1. RINVOQ [Suspect]
     Active Substance: UPADACITINIB
     Indication: Product used for unknown indication
     Dosage: FORM STRENGTH:30 MILLIGRAM
     Route: 048

REACTIONS (4)
  - Cutaneous T-cell lymphoma [Recovered/Resolved]
  - Unevaluable event [Recovered/Resolved]
  - Rash [Recovered/Resolved]
  - Myeloproliferative neoplasm [Recovered/Resolved]
